FAERS Safety Report 6224055-7 (Version None)
Quarter: 2009Q2

REPORT INFORMATION
  Report Type: 
  Country: None (occurrence: None)
  Receive Date: 20090612
  Receipt Date: 20090306
  Transmission Date: 20091009
  Serious: No
  Sender: FDA-Public Use
  Company Number: US-ABBOTT-09P-163-0561325-00

PATIENT
  Sex: Female
  Weight: 92.616 kg

DRUGS (1)
  1. HUMIRA [Suspect]
     Indication: ANKYLOSING SPONDYLITIS
     Dates: start: 20081217

REACTIONS (4)
  - FATIGUE [None]
  - FOOD POISONING [None]
  - NAUSEA [None]
  - VOMITING [None]
